FAERS Safety Report 9320015 (Version 4)
Quarter: 2017Q2

REPORT INFORMATION
  Report Type: Report from Study
  Country: ES (occurrence: ES)
  Receive Date: 20130530
  Receipt Date: 20170609
  Transmission Date: 20170830
  Serious: Yes (Hospitalization)
  Sender: FDA-Public Use
  Company Number: ES-JNJFOC-20130513614

PATIENT

DRUGS (22)
  1. ZUCLOPENTIXOL [Suspect]
     Active Substance: ZUCLOPENTHIXOL
     Indication: DELUSIONAL DISORDER, UNSPECIFIED TYPE
     Route: 065
  2. ZUCLOPENTIXOL [Suspect]
     Active Substance: ZUCLOPENTHIXOL
     Indication: SCHIZOPHRENIA
     Route: 065
  3. HALOPERIDOL. [Suspect]
     Active Substance: HALOPERIDOL
     Indication: BIPOLAR DISORDER
     Route: 065
  4. HALOPERIDOL. [Suspect]
     Active Substance: HALOPERIDOL
     Indication: SCHIZOPHRENIA
     Route: 065
  5. XEPLION [Suspect]
     Active Substance: PALIPERIDONE PALMITATE
     Indication: DELUSIONAL DISORDER, UNSPECIFIED TYPE
     Route: 030
  6. XEPLION [Suspect]
     Active Substance: PALIPERIDONE PALMITATE
     Indication: SCHIZOAFFECTIVE DISORDER
     Route: 030
  7. RISPERDAL CONSTA [Suspect]
     Active Substance: RISPERIDONE
     Indication: SCHIZOAFFECTIVE DISORDER
     Route: 030
  8. RISPERDAL CONSTA [Suspect]
     Active Substance: RISPERIDONE
     Indication: SCHIZOPHRENIA
     Route: 030
  9. FLUPHENAZINE [Suspect]
     Active Substance: FLUPHENAZINE
     Indication: SCHIZOAFFECTIVE DISORDER
     Route: 065
  10. XEPLION [Suspect]
     Active Substance: PALIPERIDONE PALMITATE
     Indication: BIPOLAR DISORDER
     Route: 030
  11. FLUPHENAZINE [Suspect]
     Active Substance: FLUPHENAZINE
     Indication: SCHIZOPHRENIA
     Route: 065
  12. ZUCLOPENTIXOL [Suspect]
     Active Substance: ZUCLOPENTHIXOL
     Indication: SCHIZOAFFECTIVE DISORDER
     Route: 065
  13. FLUPHENAZINE [Suspect]
     Active Substance: FLUPHENAZINE
     Indication: BIPOLAR DISORDER
     Route: 065
  14. ZUCLOPENTIXOL [Suspect]
     Active Substance: ZUCLOPENTHIXOL
     Indication: BIPOLAR DISORDER
     Route: 065
  15. INVEGA [Suspect]
     Active Substance: PALIPERIDONE
     Indication: SCHIZOPHRENIA
     Route: 048
  16. RISPERDAL CONSTA [Suspect]
     Active Substance: RISPERIDONE
     Indication: DELUSIONAL DISORDER, UNSPECIFIED TYPE
     Route: 030
  17. RISPERDAL [Suspect]
     Active Substance: RISPERIDONE
     Indication: SCHIZOPHRENIA
     Route: 048
  18. RISPERDAL CONSTA [Suspect]
     Active Substance: RISPERIDONE
     Indication: BIPOLAR DISORDER
     Route: 030
  19. XEPLION [Suspect]
     Active Substance: PALIPERIDONE PALMITATE
     Indication: SCHIZOPHRENIA
     Route: 030
  20. FLUPHENAZINE [Suspect]
     Active Substance: FLUPHENAZINE
     Indication: DELUSIONAL DISORDER, UNSPECIFIED TYPE
     Route: 065
  21. HALOPERIDOL. [Suspect]
     Active Substance: HALOPERIDOL
     Indication: DELUSIONAL DISORDER, UNSPECIFIED TYPE
     Route: 065
  22. HALOPERIDOL. [Suspect]
     Active Substance: HALOPERIDOL
     Indication: SCHIZOAFFECTIVE DISORDER
     Route: 065

REACTIONS (2)
  - Condition aggravated [Unknown]
  - Drug ineffective [Unknown]
